FAERS Safety Report 10010916 (Version 1)
Quarter: 2014Q1

REPORT INFORMATION
  Report Type: Spontaneous
  Country: US (occurrence: US)
  Receive Date: 20140314
  Receipt Date: 20140314
  Transmission Date: 20141002
  Serious: No
  Sender: FDA-Public Use
  Company Number: US-DRREDDYS-USA/USA/13/0029985

PATIENT
  Age: 49 Year
  Sex: Male
  Weight: 82.63 kg

DRUGS (1)
  1. CETIRIZINE 10 MG [Suspect]
     Indication: RHINITIS ALLERGIC
     Dosage: 10 MG DAILY
     Route: 048
     Dates: start: 20130602

REACTIONS (1)
  - Somnolence [Not Recovered/Not Resolved]
